FAERS Safety Report 8000312-9 (Version None)
Quarter: 2011Q4

REPORT INFORMATION
  Report Type: 
  Country: None (occurrence: None)
  Receive Date: 20111216
  Receipt Date: 20111207
  Transmission Date: 20120403
  Serious: Yes (Other)
  Sender: FDA-Public Use
  Company Number: DSA_48117_2011

PATIENT
  Sex: Female

DRUGS (4)
  1. LITHIUM [Concomitant]
  2. BUPROPION HYDROCHLORIDE [Suspect]
     Indication: DEPRESSION
     Dosage: (150 MG QD ORAL)
     Route: 048
     Dates: start: 20110930
  3. AMBROXOL [Concomitant]
  4. BUDESONIDE [Concomitant]

REACTIONS (9)
  - RESPIRATORY DISTRESS [None]
  - RESTLESSNESS [None]
  - APHASIA [None]
  - DYSPHONIA [None]
  - WEIGHT DECREASED [None]
  - COUGH [None]
  - TRACHEOBRONCHITIS [None]
  - DECREASED APPETITE [None]
  - HEADACHE [None]
